FAERS Safety Report 11767818 (Version 3)
Quarter: 2016Q1

REPORT INFORMATION
  Report Type: Spontaneous
  Country: US (occurrence: US)
  Receive Date: 20151123
  Receipt Date: 20160125
  Transmission Date: 20160525
  Serious: Yes (Other)
  Sender: FDA-Public Use
  Company Number: US-PFIZER INC-2015386094

PATIENT
  Age: 70 Year
  Sex: Female
  Weight: 73 kg

DRUGS (2)
  1. LYRICA [Suspect]
     Active Substance: PREGABALIN
     Dosage: 1 DF, SINGLE
     Route: 048
     Dates: start: 2015, end: 2015
  2. LYRICA [Suspect]
     Active Substance: PREGABALIN
     Indication: PAIN
     Dosage: 50 MG, 3X/DAY, EVERY 8 HRS AS NEEDED
     Route: 048
     Dates: start: 20150805, end: 2015

REACTIONS (10)
  - Abasia [Unknown]
  - Muscle spasms [Unknown]
  - Arthralgia [Recovering/Resolving]
  - Nerve compression [Recovering/Resolving]
  - Pain in extremity [Recovering/Resolving]
  - Feeling drunk [Not Recovered/Not Resolved]
  - Hypokinesia [Unknown]
  - Vision blurred [Recovering/Resolving]
  - Condition aggravated [Recovering/Resolving]
  - Somnolence [Not Recovered/Not Resolved]

NARRATIVE: CASE EVENT DATE: 201508
